FAERS Safety Report 25273206 (Version 1)
Quarter: 2025Q2

REPORT INFORMATION
  Report Type: Spontaneous
  Country: GB (occurrence: GB)
  Receive Date: 20250506
  Receipt Date: 20250506
  Transmission Date: 20250717
  Serious: Yes (Other)
  Sender: TEVA
  Company Number: GB-MHRA-TPP8764458C9501826YC1746004767176

PATIENT
  Age: 77 Year
  Sex: Male
  Weight: 103 kg

DRUGS (11)
  1. ROSUVASTATIN [Suspect]
     Active Substance: ROSUVASTATIN
     Indication: Ill-defined disorder
     Dosage: DURATION: 21 DAYS
     Route: 048
     Dates: start: 20250410, end: 20250430
  2. AMLODIPINE [Concomitant]
     Active Substance: AMLODIPINE BESYLATE
     Indication: Hypertension
     Dosage: IN THE MORNING
     Route: 048
     Dates: start: 20250214
  3. GLUCORX [Concomitant]
     Indication: Ill-defined disorder
     Dates: start: 20250102
  4. EPILIM [Concomitant]
     Active Substance: VALPROATE SODIUM
     Indication: Ill-defined disorder
     Route: 048
     Dates: start: 20240925
  5. CLOPIDOGREL [Concomitant]
     Active Substance: CLOPIDOGREL BISULFATE
     Indication: Ill-defined disorder
     Route: 048
     Dates: start: 20250311
  6. ATORVASTATIN [Concomitant]
     Active Substance: ATORVASTATIN
     Indication: Ill-defined disorder
     Dosage: DURATION: 31 DAYS
     Route: 048
     Dates: start: 20250311, end: 20250410
  7. SHARPSAFE [Concomitant]
     Indication: Ill-defined disorder
     Dates: start: 20250102
  8. METFORMIN [Concomitant]
     Active Substance: METFORMIN HYDROCHLORIDE
     Indication: Ill-defined disorder
     Route: 048
     Dates: start: 20240925
  9. GLUCORX Q [Concomitant]
     Indication: Ill-defined disorder
     Dates: start: 20250102
  10. TAMSULOSIN HYDROCHLORIDE [Concomitant]
     Active Substance: TAMSULOSIN HYDROCHLORIDE
     Indication: Ill-defined disorder
     Route: 048
     Dates: start: 20241218
  11. DAPAGLIFLOZIN [Concomitant]
     Active Substance: DAPAGLIFLOZIN
     Indication: Ill-defined disorder
     Route: 048
     Dates: start: 20241217

REACTIONS (2)
  - Muscle spasms [Unknown]
  - Hypersensitivity [Unknown]

NARRATIVE: CASE EVENT DATE: 20250430
